FAERS Safety Report 16167639 (Version 2)
Quarter: 2019Q2

REPORT INFORMATION
  Report Type: Report from Study
  Country: US (occurrence: US)
  Receive Date: 20190408
  Receipt Date: 20190415
  Transmission Date: 20190711
  Serious: Yes (Other)
  Sender: FDA-Public Use
  Company Number: US-ROCHE-2296610

PATIENT
  Sex: Female
  Weight: 73.55 kg

DRUGS (7)
  1. ESBRIET [Suspect]
     Active Substance: PIRFENIDONE
     Indication: IDIOPATHIC PULMONARY FIBROSIS
     Dosage: PALE YELLOW TABLETS, TAKING 5 WEEKS; TAKES 3 TABLETS 2-3 TIMES A DAY
     Route: 048
  2. VITAMIN C [Concomitant]
     Active Substance: ASCORBIC ACID
  3. TRAZODONE [Concomitant]
     Active Substance: TRAZODONE HYDROCHLORIDE
     Dosage: ONGOING:YES
     Route: 065
  4. MORPHINE [Concomitant]
     Active Substance: MORPHINE
  5. VITAMIN B12 [Concomitant]
     Active Substance: CYANOCOBALAMIN
     Dosage: ONGOING YES
     Route: 065
  6. ESBRIET [Suspect]
     Active Substance: PIRFENIDONE
     Dosage: ONGOING: UNKNOWN
     Route: 065
  7. TEGRETOL [Concomitant]
     Active Substance: CARBAMAZEPINE
     Dosage: ONGOING: YES
     Route: 065

REACTIONS (10)
  - Cystitis [Not Recovered/Not Resolved]
  - Abdominal pain upper [Unknown]
  - Pain [Not Recovered/Not Resolved]
  - Abdominal discomfort [Unknown]
  - Dyspnoea [Not Recovered/Not Resolved]
  - Hot flush [Unknown]
  - Nervousness [Unknown]
  - Ill-defined disorder [Unknown]
  - Vomiting [Recovered/Resolved with Sequelae]
  - Cough [Unknown]
